FAERS Safety Report 24899496 (Version 1)
Quarter: 2025Q1

REPORT INFORMATION
  Report Type: Report from Study
  Country: US (occurrence: US)
  Receive Date: 20250129
  Receipt Date: 20250129
  Transmission Date: 20250409
  Serious: No
  Sender: ACADIA PHARMACEUTICALS
  Company Number: US-ACADIA PHARMACEUTICALS INC.-ACA-2025-PIM-000598

PATIENT
  Sex: Male

DRUGS (11)
  1. NUPLAZID [Suspect]
     Active Substance: PIMAVANSERIN TARTRATE
     Indication: Parkinson^s disease
     Dosage: 34 MILLIGRAM, QD
     Route: 048
     Dates: start: 20220714, end: 20250119
  2. AMLODIPINE [Concomitant]
     Active Substance: AMLODIPINE BESYLATE
  3. CARBIDOPA\LEVODOPA [Concomitant]
     Active Substance: CARBIDOPA\LEVODOPA
  4. ESCITALOPRAM [Concomitant]
     Active Substance: ESCITALOPRAM OXALATE
  5. IBANDRONATE SODIUM [Concomitant]
     Active Substance: IBANDRONATE SODIUM
  6. IRBESARTAN [Concomitant]
     Active Substance: IRBESARTAN
  7. MEMANTINE [Concomitant]
     Active Substance: MEMANTINE
  8. METFORMIN [Concomitant]
     Active Substance: METFORMIN HYDROCHLORIDE
  9. MIRTAZAPINE [Concomitant]
     Active Substance: MIRTAZAPINE
  10. ROSUVASTATIN [Concomitant]
     Active Substance: ROSUVASTATIN
  11. TIZANIDINE [Concomitant]
     Active Substance: TIZANIDINE

REACTIONS (1)
  - Condition aggravated [Recovered/Resolved]
